FAERS Safety Report 9254861 (Version 1)
Quarter: 2013Q2

REPORT INFORMATION
  Report Type: Spontaneous
  Country: US (occurrence: US)
  Receive Date: 20130425
  Receipt Date: 20130425
  Transmission Date: 20140414
  Serious: Yes (Hospitalization, Other)
  Sender: FDA-Public Use
  Company Number: US-PFIZER INC-2012094273

PATIENT
  Age: 65 Year
  Sex: Male
  Weight: 83.45 kg

DRUGS (9)
  1. REVATIO [Suspect]
     Indication: PULMONARY EMBOLISM
     Dosage: 20 MG, 3X/DAY
     Route: 048
     Dates: start: 2000, end: 20120411
  2. REVATIO [Suspect]
     Indication: PULMONARY HYPERTENSION
     Dosage: 20 MG, 3X/DAY
     Route: 048
     Dates: end: 2012
  3. REVATIO [Suspect]
     Dosage: 20 MG, 3X/DAY
     Route: 048
     Dates: end: 20130408
  4. VIAGRA [Suspect]
     Dosage: UNK, 3X/DAY
     Dates: start: 2012
  5. ZAROXOLYN [Suspect]
     Indication: HYPERTENSION
     Dosage: 2.5 MG, 1X/DAY
     Route: 048
     Dates: end: 20120330
  6. TRACLEER [Concomitant]
     Indication: LUNG DISORDER
     Dosage: UNK
  7. ALLOPURINOL [Concomitant]
     Indication: GOUT
     Dosage: UNK
  8. COUMADIN [Concomitant]
     Dosage: UNK
  9. METFORMIN [Concomitant]
     Indication: DIABETES MELLITUS
     Dosage: UNK

REACTIONS (15)
  - Dyspnoea [Unknown]
  - Pulmonary embolism [Unknown]
  - Fall [Unknown]
  - Fall [Unknown]
  - Upper limb fracture [Unknown]
  - Cardiac discomfort [Unknown]
  - Gait disturbance [Unknown]
  - Dysuria [Unknown]
  - Micturition disorder [Unknown]
  - Asthenia [Unknown]
  - Heart rate decreased [Unknown]
  - Body height decreased [Unknown]
  - International normalised ratio decreased [Unknown]
  - Wrong drug administered [Unknown]
  - Expired drug administered [Unknown]
